FAERS Safety Report 9085209 (Version 2)
Quarter: 2013Q1

REPORT INFORMATION
  Report Type: Spontaneous
  Country: US (occurrence: US)
  Receive Date: 20130131
  Receipt Date: 20130215
  Transmission Date: 20140127
  Serious: No
  Sender: FDA-Public Use
  Company Number: US-PFIZER INC-2013037100

PATIENT
  Age: 59 Year
  Sex: Female
  Weight: 72 kg

DRUGS (3)
  1. ESTRING [Suspect]
     Indication: ATROPHIC VULVOVAGINITIS
     Dosage: 2 MG, UNK
     Route: 067
     Dates: start: 2009
  2. ESTRING [Suspect]
     Indication: DYSPAREUNIA
  3. ESTRING [Suspect]
     Indication: VAGINAL HAEMORRHAGE

REACTIONS (1)
  - Vulvovaginal discomfort [Unknown]
